FAERS Safety Report 8509794-7 (Version None)
Quarter: 2012Q2

REPORT INFORMATION
  Report Type: 
  Country: None (occurrence: None)
  Receive Date: 20120405
  Receipt Date: 20090619
  Transmission Date: 20120825
  Serious: Yes (Other)
  Sender: FDA-Public Use
  Company Number: PHEH2009US05571

PATIENT
  Age: 70 Year
  Sex: Female
  Weight: 56.4 kg

DRUGS (4)
  1. TYLENOL ARTHRITIS (PARACETAMOL) [Concomitant]
  2. CALCIUM WITH VITAMIN D (CALCIUM PHOSPHATE, CALCIUM SODIUM LACTATE, ERG [Concomitant]
  3. RANITIDINE HYDROCHLORIDE [Concomitant]
  4. RECLAST [Suspect]
     Indication: OSTEOPOROSIS
     Dosage: ONCE YEARLY, INFUSION
     Dates: start: 20090429, end: 20090429

REACTIONS (4)
  - BLOOD PRESSURE INCREASED [None]
  - FEELING ABNORMAL [None]
  - MALAISE [None]
  - TINNITUS [None]
